FAERS Safety Report 11130812 (Version 2)
Quarter: 2015Q2

REPORT INFORMATION
  Report Type: Spontaneous
  Country: ES (occurrence: ES)
  Receive Date: 20150522
  Receipt Date: 20150619
  Transmission Date: 20150821
  Serious: Yes (Other)
  Sender: FDA-Public Use
  Company Number: ES-JNJFOC-20150509810

PATIENT
  Age: 75 Year
  Sex: Female

DRUGS (3)
  1. OLYSIO [Suspect]
     Active Substance: SIMEPREVIR
     Indication: HEPATITIS C
     Route: 065
     Dates: start: 20150302
  2. SOFOSBUVIR [Suspect]
     Active Substance: SOFOSBUVIR
     Indication: HEPATITIS C
     Route: 065
     Dates: start: 20150302
  3. SPIRONOLACTONE. [Concomitant]
     Active Substance: SPIRONOLACTONE
     Route: 048

REACTIONS (7)
  - Lip oedema [Unknown]
  - Rash [Unknown]
  - Photosensitivity reaction [Unknown]
  - Pruritus [Unknown]
  - Cheilitis [Unknown]
  - Ulcerative keratitis [Unknown]
  - Corneal leukoma [Unknown]

NARRATIVE: CASE EVENT DATE: 2015
